FAERS Safety Report 6999577 (Version 3)
Quarter: 2012Q4

REPORT INFORMATION
  Report Type: 
  Country: US (occurrence: US)
  Receive Date: 20060124
  Receipt Date: 20121029
  Transmission Date: 20130627
  Serious: Yes (Other)
  Sender: FDA-Public Use
  Company Number: US-PFIZER INC-2006009230

PATIENT
  Age: 60 Year
  Sex: Female
  Weight: 48 kg

DRUGS (7)
  1. PROVERA [Suspect]
     Indication: HORMONE REPLACEMENT THERAPY
     Route: 048
     Dates: start: 199507, end: 200002
  2. MEDROXYPROGESTERONE ACETATE [Suspect]
     Indication: HORMONE REPLACEMENT THERAPY
     Dosage: 10 mg, UNK
     Dates: start: 19990113, end: 20000209
  3. CYCRIN [Suspect]
     Indication: HORMONE REPLACEMENT THERAPY
     Dosage: 2.5 mg, UNK
     Dates: start: 19950724, end: 19960609
  4. CYCRIN [Suspect]
     Dosage: 10 mg, UNK
     Route: 065
     Dates: start: 19960802, end: 19990627
  5. ESTRADIOL [Suspect]
     Indication: HORMONE REPLACEMENT THERAPY
     Dosage: 2 mg, UNK
     Route: 048
     Dates: start: 19960529, end: 19960726
  6. ESTRADIOL [Suspect]
     Dosage: 1 mg, UNK
     Route: 048
     Dates: start: 19961223, end: 20000209
  7. LIPITOR [Concomitant]
     Indication: CHOLESTEROL LOW
     Dosage: 20 mg, daily
     Route: 065
     Dates: start: 19990318, end: 20030916

REACTIONS (1)
  - Breast cancer female [Unknown]
